FAERS Safety Report 25550764 (Version 4)
Quarter: 2025Q4

REPORT INFORMATION
  Report Type: Spontaneous
  Country: US (occurrence: US)
  Receive Date: 20250714
  Receipt Date: 20251001
  Transmission Date: 20260118
  Serious: No
  Sender: CALLIDITAS THERAPEUTICS AB
  Company Number: US-Calliditas-2025CAL01638

PATIENT
  Age: 74 Year
  Sex: Female

DRUGS (20)
  1. TARPEYO [Suspect]
     Active Substance: BUDESONIDE
     Indication: IgA nephropathy
     Dosage: 16MG (4MG CAPSULES) ONCE DAILY
     Route: 048
     Dates: start: 20250430
  2. CHOLECALCIFEROL [Concomitant]
     Active Substance: CHOLECALCIFEROL
  3. LEVOTHYROXINE [Concomitant]
     Active Substance: LEVOTHYROXINE
  4. ZETIA [Concomitant]
     Active Substance: EZETIMIBE
  5. METOPROLOL [Concomitant]
     Active Substance: METOPROLOL
  6. ALLOPURINOL [Concomitant]
     Active Substance: ALLOPURINOL
  7. DICYCLOMINE HYDROCHLORIDE [Concomitant]
     Active Substance: DICYCLOMINE HYDROCHLORIDE
  8. SODIUM BICARBONATE [Concomitant]
     Active Substance: SODIUM BICARBONATE
  9. FAMOTIDINE [Concomitant]
     Active Substance: FAMOTIDINE
  10. KEFLEX [Concomitant]
     Active Substance: CEPHALEXIN
  11. FIBER TABS [Concomitant]
     Active Substance: CALCIUM POLYCARBOPHIL
  12. PRAVASTATIN [Concomitant]
     Active Substance: PRAVASTATIN
  13. PAROXETINE [Concomitant]
     Active Substance: PAROXETINE
  14. NITROSTAT [Concomitant]
     Active Substance: NITROGLYCERIN
  15. ACETAMINOPHEN\ASPIRIN\CAFFEINE [Concomitant]
     Active Substance: ACETAMINOPHEN\ASPIRIN\CAFFEINE
  16. LASIX [Concomitant]
     Active Substance: FUROSEMIDE
  17. LISINOPRIL [Concomitant]
     Active Substance: LISINOPRIL
  18. LIPITOR [Concomitant]
     Active Substance: ATORVASTATIN CALCIUM
  19. SOLIFENACIN [Concomitant]
     Active Substance: SOLIFENACIN
  20. DIPHENHYDRAMINE [Concomitant]
     Active Substance: DIPHENHYDRAMINE

REACTIONS (10)
  - Therapeutic response unexpected [Not Recovered/Not Resolved]
  - Abdominal discomfort [Recovered/Resolved]
  - Anal fissure [Not Recovered/Not Resolved]
  - Hypertension [Unknown]
  - Insomnia [Recovering/Resolving]
  - Increased appetite [Not Recovered/Not Resolved]
  - Swelling [Unknown]
  - Increased tendency to bruise [Unknown]
  - Blood pressure decreased [Unknown]
  - Fatigue [Unknown]

NARRATIVE: CASE EVENT DATE: 20250430
